FAERS Safety Report 15536860 (Version 1)
Quarter: 2018Q4

REPORT INFORMATION
  Report Type: Spontaneous
  Country: US (occurrence: US)
  Receive Date: 20181016
  Receipt Date: 20181016
  Transmission Date: 20190205
  Serious: No
  Sender: FDA-Public Use
  Company Number: None

PATIENT
  Age: 46 Year
  Sex: Female
  Weight: 70 kg

DRUGS (5)
  1. KETOROLAC TROMETHAMINE 30MG [Suspect]
     Active Substance: KETOROLAC TROMETHAMINE
     Indication: OSTECTOMY
     Dates: start: 20180917
  2. FAMOTIDINE. [Concomitant]
     Active Substance: FAMOTIDINE
  3. MORPHINE [Concomitant]
     Active Substance: MORPHINE
  4. CARISOPRODOL. [Concomitant]
     Active Substance: CARISOPRODOL
  5. RIVORAXABAN [Concomitant]

REACTIONS (1)
  - Infusion site pain [None]

NARRATIVE: CASE EVENT DATE: 20180907
